FAERS Safety Report 6534407-3 (Version None)
Quarter: 2010Q1

REPORT INFORMATION
  Report Type: 
  Country: None (occurrence: None)
  Receive Date: 20100108
  Receipt Date: 20100108
  Transmission Date: 20100710
  Serious: Yes (Hospitalization)
  Sender: FDA-Public Use
  Company Number: None

PATIENT
  Age: 54 Year
  Sex: Male
  Weight: 72 kg

DRUGS (1)
  1. PHENYTOIN [Suspect]
     Indication: CONVULSION
     Dosage: 300 MG AM PO
     Route: 048
     Dates: start: 20090706, end: 20091007

REACTIONS (14)
  - ALCOHOL ABUSE [None]
  - ANTICONVULSANT DRUG LEVEL INCREASED [None]
  - BALANCE DISORDER [None]
  - CONFUSIONAL STATE [None]
  - CONTUSION [None]
  - DISTURBANCE IN ATTENTION [None]
  - FALL [None]
  - GAIT DISTURBANCE [None]
  - HEPATIC CIRRHOSIS [None]
  - HEPATIC ENCEPHALOPATHY [None]
  - MENTAL STATUS CHANGES [None]
  - NAUSEA [None]
  - SKIN LACERATION [None]
  - VOMITING [None]
